FAERS Safety Report 6036053-7 (Version None)
Quarter: 2009Q1

REPORT INFORMATION
  Report Type: 
  Country: None (occurrence: None)
  Receive Date: 20090113
  Receipt Date: 20090107
  Transmission Date: 20090719
  Serious: Yes (Other)
  Sender: FDA-Public Use
  Company Number: GR-ABBOTT-09P-066-0496480-00

PATIENT
  Age: 4 Year
  Sex: Female

DRUGS (4)
  1. VALPROATE SODIUM [Suspect]
     Indication: CHOREOATHETOSIS
     Dosage: UNKNOWN
  2. PENICILLIN [Concomitant]
     Indication: SYDENHAM'S CHOREA
     Dosage: UNKNOWN
  3. PENICILLIN [Concomitant]
     Indication: RHEUMATIC FEVER
  4. CHEMIOPROPHYLAXIS [Concomitant]
     Indication: DRUG USE FOR UNKNOWN INDICATION
     Dosage: UNKNOWN

REACTIONS (2)
  - CHOREOATHETOSIS [None]
  - DRUG INEFFECTIVE FOR UNAPPROVED INDICATION [None]
